FAERS Safety Report 4389805-0 (Version None)
Quarter: 2004Q3

REPORT INFORMATION
  Report Type: 
  Country: None (occurrence: None)
  Receive Date: 20040706
  Receipt Date: 20040706
  Transmission Date: 20050211
  Serious: No
  Sender: FDA-Public Use
  Company Number: None

PATIENT
  Age: 54 Year
  Sex: Male
  Weight: 96.1626 kg

DRUGS (1)
  1. CRESTOR [Suspect]
     Dosage: DAILY
     Dates: start: 20040312, end: 20040612

REACTIONS (4)
  - ABASIA [None]
  - JOINT SWELLING [None]
  - MUSCULAR WEAKNESS [None]
  - PAIN [None]
